FAERS Safety Report 7580032-5 (Version None)
Quarter: 2011Q2

REPORT INFORMATION
  Report Type: 
  Country: None (occurrence: None)
  Receive Date: 20110629
  Receipt Date: 20110615
  Transmission Date: 20111010
  Serious: Yes (Hospitalization)
  Sender: FDA-Public Use
  Company Number: CA-JNJFOC-20110608489

PATIENT
  Sex: Female
  Weight: 59.4 kg

DRUGS (7)
  1. REMICADE [Suspect]
     Dosage: 12TH INFUSION
     Route: 042
     Dates: start: 20110615
  2. PREDNISONE [Concomitant]
     Dosage: JUST REDUCED FROM 5 MG PER DAY
     Route: 048
  3. REMICADE [Suspect]
     Indication: CROHN'S DISEASE
     Route: 042
  4. IMURAN [Concomitant]
     Route: 048
  5. NEXIUM [Concomitant]
     Route: 048
  6. ESTROGENIC SUBSTANCE [Concomitant]
     Route: 048
  7. PROGESTERONE [Concomitant]
     Route: 048

REACTIONS (2)
  - DYSMENORRHOEA [None]
  - POSTMENOPAUSAL HAEMORRHAGE [None]
